FAERS Safety Report 6551170-0 (Version None)
Quarter: 2010Q1

REPORT INFORMATION
  Report Type: 
  Country: None (occurrence: None)
  Receive Date: 20100121
  Receipt Date: 20100108
  Transmission Date: 20100710
  Serious: Yes (Hospitalization)
  Sender: FDA-Public Use
  Company Number: 1000011314

PATIENT
  Age: 31 Year
  Sex: Male
  Weight: 112 kg

DRUGS (4)
  1. ESCITALOPRAM [Suspect]
     Indication: DEPRESSION
     Dosage: 20 MG (20 MG, 1 IN 1 D), ORAL
     Route: 048
     Dates: start: 20091221, end: 20100102
  2. OXYCONTIN (SUSTAINAED-RELEASE TABLET) [Concomitant]
  3. MANDOLGIN [Concomitant]
  4. LYRICA [Concomitant]

REACTIONS (3)
  - GRAND MAL CONVULSION [None]
  - RHABDOMYOLYSIS [None]
  - URINARY RETENTION [None]
